FAERS Safety Report 25750508 (Version 1)
Quarter: 2025Q3

REPORT INFORMATION
  Report Type: Spontaneous
  Country: US (occurrence: None)
  Receive Date: 20250829
  Receipt Date: 20250829
  Transmission Date: 20251021
  Serious: Yes (Other)
  Sender: FDA-CTU
  Company Number: None

PATIENT
  Age: 31 Year
  Sex: Female
  Weight: 70.31 kg

DRUGS (3)
  1. ARIPIPRAZOLE [Suspect]
     Active Substance: ARIPIPRAZOLE
     Indication: Intrusive thoughts
     Dates: start: 20250205
  2. propranoioi [Concomitant]
     Dates: start: 20250205, end: 20250326
  3. DESVENLAFAXINE [Concomitant]
     Active Substance: DESVENLAFAXINE
     Dates: start: 20250205

REACTIONS (1)
  - Abortion spontaneous [None]

NARRATIVE: CASE EVENT DATE: 20250423
